FAERS Safety Report 26034396 (Version 1)
Quarter: 2025Q4

REPORT INFORMATION
  Report Type: Spontaneous
  Country: US (occurrence: US)
  Receive Date: 20251112
  Receipt Date: 20251112
  Transmission Date: 20260118
  Serious: Yes (Other)
  Sender: PROCTER AND GAMBLE
  Company Number: US-PROCTER+GAMBLE-PH25019460

PATIENT
  Age: 13 Year
  Sex: Female

DRUGS (4)
  1. DIPHENHYDRAMINE HYDROCHLORIDE [Suspect]
     Active Substance: DIPHENHYDRAMINE HYDROCHLORIDE
     Dosage: INGESTION
  2. ACARBOSE [Suspect]
     Active Substance: ACARBOSE
     Dosage: INGESTION
  3. ASPIRIN [Suspect]
     Active Substance: ASPIRIN
     Dosage: INGESTION
  4. SERTRALINE [Suspect]
     Active Substance: SERTRALINE HYDROCHLORIDE
     Dosage: INGESTION

REACTIONS (7)
  - Hallucination [Unknown]
  - Toxicity to various agents [Unknown]
  - Heart rate increased [Unknown]
  - Mucosal disorder [Unknown]
  - Skin warm [Unknown]
  - Agitation [Not Recovered/Not Resolved]
  - Mental status changes [Recovering/Resolving]
